FAERS Safety Report 7449749-7 (Version None)
Quarter: 2011Q2

REPORT INFORMATION
  Report Type: 
  Country: None (occurrence: None)
  Receive Date: 20110421
  Receipt Date: 20110411
  Transmission Date: 20111010
  Serious: Yes (Hospitalization)
  Sender: FDA-Public Use
  Company Number: UTC-006246

PATIENT
  Age: 75 Year
  Sex: Female

DRUGS (1)
  1. TYVASO [Suspect]
     Indication: PULMONARY HYPERTENSION
     Dosage: 18-24 MICROGRAMS DAILY, INHALATION
     Route: 055
     Dates: start: 20110328

REACTIONS (5)
  - OEDEMA PERIPHERAL [None]
  - DYSPNOEA [None]
  - GOUTY ARTHRITIS [None]
  - GAIT DISTURBANCE [None]
  - CONDITION AGGRAVATED [None]
